FAERS Safety Report 20606304 (Version 2)
Quarter: 2022Q3

REPORT INFORMATION
  Report Type: Report from Study
  Country: US (occurrence: US)
  Receive Date: 20220317
  Receipt Date: 20220905
  Transmission Date: 20221026
  Serious: No
  Sender: FDA-Public Use
  Company Number: US-TAKEDA-2022TUS017393

PATIENT
  Sex: Male

DRUGS (2)
  1. MARIBAVIR [Suspect]
     Active Substance: MARIBAVIR
     Indication: Cytomegalovirus infection
     Dosage: 200 MILLIGRAM, BID
     Route: 048
     Dates: start: 20220226
  2. MARIBAVIR [Suspect]
     Active Substance: MARIBAVIR
     Dosage: 2 DOSAGE FORM, BID
     Route: 048

REACTIONS (3)
  - Tongue haemorrhage [Unknown]
  - Nasopharyngitis [Recovering/Resolving]
  - Oropharyngeal pain [Recovering/Resolving]
